FAERS Safety Report 24169131 (Version 8)
Quarter: 2024Q3

REPORT INFORMATION
  Report Type: Spontaneous
  Country: US (occurrence: US)
  Receive Date: 20240802
  Receipt Date: 20240930
  Transmission Date: 20241017
  Serious: Yes (Other)
  Sender: AMNEAL
  Company Number: US-AMNEAL PHARMACEUTICALS-2024-AMRX-02736

PATIENT
  Age: 46 Year
  Sex: Female
  Weight: 112.93 kg

DRUGS (3)
  1. ADRENACLICK [Suspect]
     Active Substance: EPINEPHRINE
     Indication: Anaphylactic reaction
     Dosage: 0.3 MG
     Route: 058
  2. ADRENACLICK [Suspect]
     Active Substance: EPINEPHRINE
     Dosage: 0.3 MG
     Route: 058
  3. ADRENACLICK [Suspect]
     Active Substance: EPINEPHRINE
     Dosage: 0.3 MG
     Route: 058

REACTIONS (4)
  - Seizure [Not Recovered/Not Resolved]
  - Device failure [Unknown]
  - Device delivery system issue [Unknown]
  - Emotional disorder [Not Recovered/Not Resolved]

NARRATIVE: CASE EVENT DATE: 20240720
